FAERS Safety Report 9963964 (Version 1)
Quarter: 2014Q1

REPORT INFORMATION
  Report Type: Report from Study
  Country: US (occurrence: US)
  Receive Date: 20140305
  Receipt Date: 20140305
  Transmission Date: 20141002
  Serious: Yes (Hospitalization, Other)
  Sender: FDA-Public Use
  Company Number: US-ABBVIE-14P-163-1206627-00

PATIENT
  Sex: Male
  Weight: 42.22 kg

DRUGS (19)
  1. HUMIRA [Suspect]
     Indication: CROHN^S DISEASE
  2. HUMIRA [Suspect]
  3. HUMIRA [Suspect]
     Indication: CROHN^S DISEASE
  4. HUMIRA [Suspect]
     Dates: start: 201212, end: 201309
  5. PREDNISONE [Suspect]
     Indication: PRODUCT USED FOR UNKNOWN INDICATION
     Dates: start: 1982
  6. METHOTREXATE [Concomitant]
     Indication: CROHN^S DISEASE
     Dates: end: 201309
  7. METHOTREXATE [Concomitant]
     Dates: start: 201302
  8. WELCHOL [Concomitant]
     Indication: PRODUCT USED FOR UNKNOWN INDICATION
  9. IMODIUM [Concomitant]
     Indication: CROHN^S DISEASE
  10. HYDROCORTISONE [Concomitant]
     Indication: ADRENAL INSUFFICIENCY
  11. ALIGN [Concomitant]
     Indication: CROHN^S DISEASE
  12. ZOFRAN [Concomitant]
     Indication: NAUSEA
  13. VITAMIN D [Concomitant]
     Indication: VITAMIN SUPPLEMENTATION
  14. PANTOPRAZOLE [Concomitant]
     Indication: GASTROOESOPHAGEAL REFLUX DISEASE
  15. PANTOPRAZOLE [Concomitant]
     Indication: CROHN^S DISEASE
  16. CALCIUM [Concomitant]
     Indication: MINERAL SUPPLEMENTATION
  17. IRON [Concomitant]
     Indication: MINERAL SUPPLEMENTATION
  18. MAGNESIUM [Concomitant]
     Indication: MINERAL SUPPLEMENTATION
  19. FOLIC ACID [Concomitant]
     Indication: VITAMIN SUPPLEMENTATION

REACTIONS (30)
  - Arthralgia [Not Recovered/Not Resolved]
  - Intervertebral disc protrusion [Recovered/Resolved]
  - Osteonecrosis [Unknown]
  - Back pain [Recovering/Resolving]
  - Intervertebral disc disorder [Recovered/Resolved]
  - Nerve compression [Recovered/Resolved]
  - Pain [Recovered/Resolved]
  - Scar [Recovered/Resolved]
  - Adhesion [Recovered/Resolved]
  - Crohn^s disease [Recovering/Resolving]
  - Gastroenteritis viral [Recovered/Resolved]
  - Pyrexia [Recovered/Resolved]
  - Vomiting [Recovered/Resolved]
  - Dehydration [Recovered/Resolved]
  - Renal failure [Recovered/Resolved]
  - Hepatic failure [Recovered/Resolved]
  - Blood albumin decreased [Unknown]
  - Fluid intake reduced [Unknown]
  - Oedema [Recovered/Resolved]
  - Haemoglobin decreased [Unknown]
  - Malabsorption [Unknown]
  - Myalgia [Not Recovered/Not Resolved]
  - Arthralgia [Not Recovered/Not Resolved]
  - Injection site pain [Not Recovered/Not Resolved]
  - Injection site bruising [Recovered/Resolved]
  - Gait disturbance [Unknown]
  - Cataract [Not Recovered/Not Resolved]
  - Balance disorder [Unknown]
  - Injection site pain [Unknown]
  - Hip surgery [Unknown]
